FAERS Safety Report 4602774-3 (Version None)
Quarter: 2005Q1

REPORT INFORMATION
  Report Type: 
  Country: None (occurrence: None)
  Receive Date: 20050309
  Receipt Date: 20050225
  Transmission Date: 20050727
  Serious: Yes (Hospitalization)
  Sender: FDA-Public Use
  Company Number: GB-JNJFOC-20041103085

PATIENT
  Age: 9 Month
  Sex: Male
  Weight: 7.64 kg

DRUGS (2)
  1. ZYDOL [Suspect]
     Route: 049
  2. ZYDOL [Suspect]
     Indication: DRUG USE FOR UNKNOWN INDICATION
     Route: 049

REACTIONS (3)
  - DRUG TOXICITY [None]
  - RESPIRATORY DEPRESSION [None]
  - SOMNOLENCE [None]
